FAERS Safety Report 15616892 (Version 2)
Quarter: 2018Q4

REPORT INFORMATION
  Report Type: Report from Study
  Country: AU (occurrence: AU)
  Receive Date: 20181114
  Receipt Date: 20181114
  Transmission Date: 20190205
  Serious: Yes (Hospitalization)
  Sender: FDA-Public Use
  Company Number: AU-PFIZER INC-2018453787

PATIENT
  Age: 52 Year
  Sex: Male

DRUGS (8)
  1. CAPECITABINE. [Suspect]
     Active Substance: CAPECITABINE
     Indication: RECTAL CANCER
     Dosage: 1650 (UNIT NOT SPECIFIED)
     Route: 048
     Dates: start: 20180426, end: 20180531
  2. CAPECITABINE. [Suspect]
     Active Substance: CAPECITABINE
     Dosage: 1500 MG, UNK
     Route: 048
     Dates: start: 20181027
  3. AVELUMAB [Suspect]
     Active Substance: AVELUMAB
     Indication: RECTAL CANCER
     Dosage: 930 MG, UNK
     Route: 042
     Dates: start: 20180619, end: 20180731
  4. CAPECITABINE. [Suspect]
     Active Substance: CAPECITABINE
     Dosage: 2000 MG, UNK
     Route: 048
     Dates: start: 20181023, end: 20181024
  5. TARGIN [Concomitant]
     Active Substance: NALOXONE HYDROCHLORIDE\OXYCODONE HYDROCHLORIDE
     Indication: PAIN
     Dosage: 5 / 2.5 MG
     Route: 048
     Dates: start: 20180810
  6. OXALIPLATIN. [Suspect]
     Active Substance: OXALIPLATIN
     Indication: RECTAL CANCER
     Dosage: 260 MG, UNK
     Route: 042
     Dates: start: 20181023
  7. DUODART [Concomitant]
     Active Substance: DUTASTERIDE\TAMSULOSIN
     Indication: BENIGN PROSTATIC HYPERPLASIA
     Dosage: 0.4 / 0.5 MG
     Route: 048
     Dates: start: 2008
  8. ENDONE [Concomitant]
     Active Substance: OXYCODONE HYDROCHLORIDE
     Indication: PAIN
     Dosage: 5 MG, UNK
     Route: 048
     Dates: start: 20180810

REACTIONS (1)
  - Chest pain [Recovered/Resolved]

NARRATIVE: CASE EVENT DATE: 20181025
